FAERS Safety Report 7245204-8 (Version None)
Quarter: 2011Q1

REPORT INFORMATION
  Report Type: 
  Country: None (occurrence: None)
  Receive Date: 20110126
  Receipt Date: 20110119
  Transmission Date: 20110831
  Serious: Yes (Other)
  Sender: FDA-Public Use
  Company Number: US-AMGEN-USASP2011003571

PATIENT
  Age: 51 Year
  Sex: Male

DRUGS (2)
  1. ENBREL [Suspect]
     Dates: start: 20040415
  2. ENBREL [Suspect]
     Indication: RHEUMATOID ARTHRITIS
     Dates: start: 20040415

REACTIONS (4)
  - ABDOMINAL MASS [None]
  - ABDOMINAL PAIN [None]
  - TESTICULAR DISORDER [None]
  - TESTICULAR PAIN [None]
